FAERS Safety Report 14948727 (Version 1)
Quarter: 2018Q2

REPORT INFORMATION
  Report Type: Spontaneous
  Country: DE (occurrence: DE)
  Receive Date: 20180529
  Receipt Date: 20180529
  Transmission Date: 20180711
  Serious: Yes (Other)
  Sender: FDA-Public Use
  Company Number: DE-MYLANLABS-2018M1034220

PATIENT
  Age: 43 Year
  Sex: Female
  Weight: 65 kg

DRUGS (4)
  1. ENALAPRIL [Concomitant]
     Active Substance: ENALAPRIL
     Indication: HYPERTENSION
     Dosage: 20 [MG/D ]
     Route: 048
  2. METOPROLOL. [Suspect]
     Active Substance: METOPROLOL
     Indication: HYPERTENSION
     Dosage: 190 [MG/D ]/ TEMPORARY 190 MG/D, OTHERWISE 95 MG/D
     Route: 048
  3. NIFEDIPIN [Suspect]
     Active Substance: NIFEDIPINE
     Indication: HYPERTENSION
     Dosage: 120 [MG/D ]
     Route: 048
  4. METHYLDOPA. [Suspect]
     Active Substance: METHYLDOPA
     Indication: HYPERTENSION
     Dosage: 4000 [MG/D ]
     Route: 048

REACTIONS (3)
  - Exposure during pregnancy [Unknown]
  - Foetal death [Recovered/Resolved]
  - Foetal growth restriction [Unknown]
